FAERS Safety Report 11585493 (Version 2)
Quarter: 2015Q4

REPORT INFORMATION
  Report Type: Report from Study
  Country: BR (occurrence: BR)
  Receive Date: 20151001
  Receipt Date: 20151109
  Transmission Date: 20160304
  Serious: Yes (Death, Hospitalization, Other)
  Sender: FDA-Public Use
  Company Number: BR-BAYER-2015-428253

PATIENT
  Age: 69 Year
  Sex: Female

DRUGS (1)
  1. BETAFERON [Suspect]
     Active Substance: INTERFERON BETA-1B
     Dosage: UNK
     Dates: end: 201505

REACTIONS (3)
  - Acute leukaemia [Fatal]
  - Pain [Fatal]
  - Mobility decreased [None]

NARRATIVE: CASE EVENT DATE: 201504
